FAERS Safety Report 22136545 (Version 12)
Quarter: 2023Q4

REPORT INFORMATION
  Report Type: Spontaneous
  Country: CA (occurrence: CA)
  Receive Date: 20230324
  Receipt Date: 20231101
  Transmission Date: 20240109
  Serious: Yes (Death, Hospitalization)
  Sender: FDA-Public Use
  Company Number: CA-KARYOPHARM-2023KPT000997

PATIENT

DRUGS (10)
  1. XPOVIO [Suspect]
     Active Substance: SELINEXOR
     Indication: Plasma cell myeloma
     Dosage: 80 MG, WEEKLY FOR 5 WEEKS
     Route: 048
     Dates: start: 20230313, end: 202303
  2. XPOVIO [Suspect]
     Active Substance: SELINEXOR
     Dosage: 80 MG, WEEKLY FOR 5 WEEKS
     Route: 048
     Dates: start: 20230424, end: 20230526
  3. XPOVIO [Suspect]
     Active Substance: SELINEXOR
     Dosage: 80 MG, WEEKLY FOR 5 WEEKS
     Route: 048
     Dates: start: 20230424, end: 20230526
  4. XPOVIO [Suspect]
     Active Substance: SELINEXOR
     Dosage: 80 MG, WEEKLY
     Route: 048
     Dates: start: 2023, end: 20230807
  5. XPOVIO [Suspect]
     Active Substance: SELINEXOR
     Dosage: 100 MG, WEEKLY FOR 5 WEEKS
     Route: 048
     Dates: start: 2023, end: 2023
  6. XPOVIO [Suspect]
     Active Substance: SELINEXOR
     Dosage: 80 MG, ONCE A WEEK FOR 5 WEEKS
     Route: 048
     Dates: start: 20231003
  7. BORTEZOMIB [Concomitant]
     Active Substance: BORTEZOMIB
     Dosage: UNK
  8. DEXAMETHASONE [Concomitant]
     Active Substance: DEXAMETHASONE
     Dosage: UNK
  9. POMALIDOMIDE [Concomitant]
     Active Substance: POMALIDOMIDE
  10. CYCLOPHOSPHAMIDE [Concomitant]
     Active Substance: CYCLOPHOSPHAMIDE

REACTIONS (37)
  - Death [Fatal]
  - COVID-19 [Unknown]
  - Gait disturbance [Recovering/Resolving]
  - Aphasia [Recovering/Resolving]
  - Fall [Unknown]
  - Ear injury [Recovering/Resolving]
  - Haemorrhage [Unknown]
  - Pyrexia [Recovering/Resolving]
  - Decreased appetite [Not Recovered/Not Resolved]
  - Vomiting [Not Recovered/Not Resolved]
  - Neutropenia [Not Recovered/Not Resolved]
  - Asthenia [Not Recovered/Not Resolved]
  - Nausea [Not Recovered/Not Resolved]
  - Dehydration [Unknown]
  - Dizziness [Unknown]
  - Blood pressure increased [Unknown]
  - White blood cell count decreased [Not Recovered/Not Resolved]
  - Blood glucose increased [Unknown]
  - Loss of personal independence in daily activities [Not Recovered/Not Resolved]
  - Ageusia [Not Recovered/Not Resolved]
  - Malnutrition [Not Recovered/Not Resolved]
  - Brain fog [Unknown]
  - Musculoskeletal chest pain [Unknown]
  - Neck pain [Unknown]
  - Back pain [Unknown]
  - Gingival pain [Unknown]
  - Illness [Unknown]
  - Ocular discomfort [Unknown]
  - Faeces discoloured [Unknown]
  - Fatigue [Unknown]
  - Diarrhoea [Not Recovered/Not Resolved]
  - Dyspnoea exertional [Not Recovered/Not Resolved]
  - Haemoglobin decreased [Not Recovered/Not Resolved]
  - Platelet count decreased [Not Recovered/Not Resolved]
  - Weight decreased [Not Recovered/Not Resolved]
  - Confusional state [Unknown]
  - Treatment noncompliance [Not Recovered/Not Resolved]

NARRATIVE: CASE EVENT DATE: 20230101
